FAERS Safety Report 20879289 (Version 1)
Quarter: 2022Q2

REPORT INFORMATION
  Report Type: Spontaneous
  Country: JP (occurrence: None)
  Receive Date: 20220526
  Receipt Date: 20220526
  Transmission Date: 20220721
  Serious: Yes (Hospitalization)
  Sender: FDA-Public Use
  Company Number: 2022A198336

PATIENT
  Age: 80 Year
  Sex: Male

DRUGS (1)
  1. ACLIDINIUM BROMIDE [Suspect]
     Active Substance: ACLIDINIUM BROMIDE
     Indication: Chronic obstructive pulmonary disease
     Dosage: 400 ?G, 30 INHALATIONS
     Route: 055

REACTIONS (2)
  - Hospitalisation [Unknown]
  - Product quality issue [Unknown]
